FAERS Safety Report 4709322-8 (Version None)
Quarter: 2005Q3

REPORT INFORMATION
  Report Type: 
  Country: None (occurrence: None)
  Receive Date: 20050708
  Receipt Date: 20050627
  Transmission Date: 20060218
  Serious: Yes (Other)
  Sender: FDA-Public Use
  Company Number: US-JNJFOC-20050607501

PATIENT
  Age: 27 Year
  Sex: Female
  Weight: 65.32 kg

DRUGS (4)
  1. REMICADE [Suspect]
     Route: 042
  2. REMICADE [Suspect]
     Indication: CROHN'S DISEASE
     Route: 042
  3. PREDNISONE TAB [Concomitant]
     Dosage: STOPPED 2 TO 3 WEEKS AGO
  4. ASACOL [Concomitant]
     Indication: CROHN'S DISEASE

REACTIONS (2)
  - MASS [None]
  - VULVOVAGINAL MYCOTIC INFECTION [None]
